FAERS Safety Report 7977749-7 (Version None)
Quarter: 2011Q4

REPORT INFORMATION
  Report Type: 
  Country: None (occurrence: None)
  Receive Date: 20111214
  Receipt Date: 20111128
  Transmission Date: 20120403
  Serious: No
  Sender: FDA-Public Use
  Company Number: US-AMGEN-USASP2011062823

PATIENT
  Age: 62 Year
  Sex: Male

DRUGS (2)
  1. ENBREL [Suspect]
     Indication: PSORIATIC ARTHROPATHY
     Dosage: 50 MG, QWK
     Dates: start: 20050101, end: 20110801
  2. ENBREL [Suspect]
     Indication: ANKYLOSING SPONDYLITIS

REACTIONS (8)
  - DYSURIA [None]
  - ARTHRALGIA [None]
  - URINE FLOW DECREASED [None]
  - PARAESTHESIA [None]
  - HYPOKINESIA [None]
  - PRURITUS [None]
  - BURNING SENSATION [None]
  - FATIGUE [None]
